FAERS Safety Report 24280552 (Version 1)
Quarter: 2024Q3

REPORT INFORMATION
  Report Type: Spontaneous
  Country: GB (occurrence: GB)
  Receive Date: 20240904
  Receipt Date: 20240904
  Transmission Date: 20241016
  Serious: Yes (Other)
  Sender: CELLTRION
  Company Number: GB-CELLTRION INC.-2024GB020847

PATIENT

DRUGS (2)
  1. YUFLYMA [Suspect]
     Active Substance: ADALIMUMAB-AATY
     Indication: Axial spondyloarthritis
     Dosage: 40MG PEN
     Route: 058
     Dates: start: 202407
  2. YUFLYMA [Suspect]
     Active Substance: ADALIMUMAB-AATY
     Dosage: 40MG PEN PK2
     Route: 058
     Dates: start: 20240815

REACTIONS (9)
  - Pelvic pain [Unknown]
  - Musculoskeletal pain [Unknown]
  - Arthralgia [Unknown]
  - Headache [Unknown]
  - Feeling hot [Unknown]
  - Burning sensation [Unknown]
  - Anxiety [Unknown]
  - Pruritus [Unknown]
  - Pyrexia [Unknown]
